FAERS Safety Report 8766304 (Version 2)
Quarter: 2013Q1

REPORT INFORMATION
  Report Type: Spontaneous
  Country: GB (occurrence: GB)
  Receive Date: 20120904
  Receipt Date: 20130123
  Transmission Date: 20140127
  Serious: Yes (Death)
  Sender: FDA-Public Use
  Company Number: GB-ROCHE-1114717

PATIENT
  Age: 94 Year
  Sex: Male

DRUGS (3)
  1. LUCENTIS [Suspect]
     Indication: CHOROIDAL NEOVASCULARISATION
     Route: 050
  2. LUCENTIS [Suspect]
     Dosage: FOURTH INJECTION
     Route: 050
     Dates: start: 20100216
  3. FOLATE [Concomitant]

REACTIONS (1)
  - Left ventricular failure [Fatal]
